FAERS Safety Report 21772895 (Version 1)
Quarter: 2022Q4

REPORT INFORMATION
  Report Type: Spontaneous
  Country: FR (occurrence: FR)
  Receive Date: 20221223
  Receipt Date: 20221223
  Transmission Date: 20230113
  Serious: Yes (Other)
  Sender: FDA-Public Use
  Company Number: None

PATIENT
  Age: 64 Year
  Sex: Male
  Weight: 77 kg

DRUGS (5)
  1. PAROXETINE [Suspect]
     Active Substance: PAROXETINE
     Indication: Bipolar disorder
     Dosage: STRENGTH : 20 MG, UNIT DOSE : 1 DOSAGE FORM, FREQUENCY TIME : 1 DAY
     Route: 065
     Dates: start: 20210901
  2. VALPROMIDE [Concomitant]
     Active Substance: VALPROMIDE
     Indication: Product used for unknown indication
     Dosage: STRENGTH : 300 MG, GASTRO-RESISTANT FILM-COATED TABLET, THERAPY START DATE : ASKU
  3. OXAZEPAM [Concomitant]
     Active Substance: OXAZEPAM
     Indication: Product used for unknown indication
     Dosage: STRENGTH : 50 MG, SCORED TABLET, THERAPY START DATE : ASKU
  4. PROPRANOLOL [Concomitant]
     Active Substance: PROPRANOLOL HYDROCHLORIDE
     Indication: Product used for unknown indication
     Dosage: THERAPY START DATE : ASKU
  5. LEVOTHYROXINE [Concomitant]
     Active Substance: LEVOTHYROXINE
     Indication: Product used for unknown indication
     Dosage: STRENGTH : 100 MICROGRAMS, SCORED TABLET, THERAPY START DATE : ASKU

REACTIONS (1)
  - Glaucoma [Not Recovered/Not Resolved]

NARRATIVE: CASE EVENT DATE: 20211029
